FAERS Safety Report 20492488 (Version 3)
Quarter: 2022Q1

REPORT INFORMATION
  Report Type: Report from Study
  Country: EG (occurrence: EG)
  Receive Date: 20220219
  Receipt Date: 20220226
  Transmission Date: 20220423
  Serious: Yes (Other)
  Sender: FDA-Public Use
  Company Number: EG-NOVARTISPH-NVSC2022EG035963

PATIENT
  Sex: Female

DRUGS (5)
  1. GILENYA [Suspect]
     Active Substance: FINGOLIMOD HYDROCHLORIDE
     Indication: Multiple sclerosis
     Dosage: 0.5 MG, QD
     Route: 048
     Dates: start: 2015
  2. BETAFERON [Concomitant]
     Active Substance: INTERFERON BETA-1B
     Indication: Multiple sclerosis
     Dosage: 1 DOSAGE FORM, QOD (ONE INJECTION EVERY OTHER DAY)
     Route: 065
     Dates: start: 2015
  3. VIBRAMYCIN [Concomitant]
     Active Substance: DOXYCYCLINE
     Indication: Surgery
     Dosage: 1 DOSAGE FORM, QD, THEY WERE TAKEN INTERCHANGEAB
     Route: 065
     Dates: start: 201909
  4. AUGMENTIN [Concomitant]
     Active Substance: AMOXICILLIN\CLAVULANATE POTASSIUM
     Indication: Surgery
     Dosage: 1 DOSAGE FORM, BID, (THEY WERE TAKEN INTERCHANGEABLY
     Route: 065
     Dates: start: 201909
  5. PANADOL [Concomitant]
     Active Substance: ACETAMINOPHEN
     Indication: Analgesic therapy
     Dosage: BID (WHEN NEEDED)
     Route: 065
     Dates: start: 2015

REACTIONS (15)
  - Immunodeficiency [Recovering/Resolving]
  - Urinary retention [Not Recovered/Not Resolved]
  - Automatic bladder [Not Recovered/Not Resolved]
  - Ovarian abscess [Not Recovered/Not Resolved]
  - Pain [Not Recovered/Not Resolved]
  - Pyrexia [Not Recovered/Not Resolved]
  - Pelvic inflammatory disease [Not Recovered/Not Resolved]
  - Herpes virus test abnormal [Unknown]
  - White blood cell count increased [Unknown]
  - Hypotension [Recovered/Resolved]
  - Dizziness [Recovered/Resolved]
  - Balance disorder [Recovered/Resolved]
  - Appendix disorder [Recovered/Resolved]
  - Abdominal adhesions [Not Recovered/Not Resolved]
  - Abdominal pain [Not Recovered/Not Resolved]

NARRATIVE: CASE EVENT DATE: 20150101
